FAERS Safety Report 5795377-9 (Version None)
Quarter: 2008Q2

REPORT INFORMATION
  Report Type: 
  Country: None (occurrence: None)
  Receive Date: 20080630
  Receipt Date: 20080618
  Transmission Date: 20081010
  Serious: Yes (Hospitalization)
  Sender: FDA-Public Use
  Company Number: DE-PFIZER INC-2006111468

PATIENT
  Sex: Male
  Weight: 79 kg

DRUGS (16)
  1. SU-011,248 [Suspect]
     Indication: METASTATIC RENAL CELL CARCINOMA
     Route: 048
  2. LEVOTHYROXINE SODIUM [Concomitant]
  3. ALLOPURINOL [Concomitant]
  4. CANDESARTAN [Concomitant]
  5. CARBAMAZEPINE [Concomitant]
  6. YEAST [Concomitant]
  7. AESCIN [Concomitant]
  8. DEXIBUPROFEN [Concomitant]
  9. AMBROXOL [Concomitant]
  10. DIHYDROCODEINE [Concomitant]
     Route: 048
  11. METAMIZOLE [Concomitant]
     Route: 048
  12. DICLOFENAC SODIUM [Concomitant]
     Route: 048
  13. TRAMADOL HCL [Concomitant]
     Route: 048
  14. SELENIUM [Concomitant]
     Route: 048
  15. BETACAROTENE [Concomitant]
     Route: 048
  16. VITAMINS [Concomitant]
     Route: 048

REACTIONS (1)
  - ABSCESS [None]
